FAERS Safety Report 11951840 (Version 1)
Quarter: 2016Q1

REPORT INFORMATION
  Report Type: Spontaneous
  Country: GB (occurrence: GB)
  Receive Date: 20160126
  Receipt Date: 20160126
  Transmission Date: 20160526
  Serious: Yes (Other)
  Sender: FDA-Public Use
  Company Number: GB-BAXTER-2016BAX002785

PATIENT
  Age: 72 Year
  Sex: Female

DRUGS (9)
  1. CYCLOPHOSPHAMIDE INJECTION 1G [Suspect]
     Active Substance: CYCLOPHOSPHAMIDE
     Indication: OFF LABEL USE
  2. VINCRISTINE [Suspect]
     Active Substance: VINCRISTINE
     Indication: B-CELL LYMPHOMA
     Dosage: 3 COURSES
     Route: 065
  3. CYCLOPHOSPHAMIDE INJECTION 1G [Suspect]
     Active Substance: CYCLOPHOSPHAMIDE
     Indication: B-CELL LYMPHOMA
     Dosage: 3 COURSES
     Route: 065
  4. DOXORUBICIN [Suspect]
     Active Substance: DOXORUBICIN
     Indication: OFF LABEL USE
  5. VINCRISTINE [Suspect]
     Active Substance: VINCRISTINE
     Indication: OFF LABEL USE
  6. ZAPONEX [Suspect]
     Active Substance: CLOZAPINE
     Indication: OFF LABEL USE
     Route: 048
     Dates: start: 20160107
  7. DOXORUBICIN [Suspect]
     Active Substance: DOXORUBICIN
     Indication: B-CELL LYMPHOMA
     Dosage: 3 COURSES
     Route: 065
  8. ZAPONEX [Suspect]
     Active Substance: CLOZAPINE
     Indication: SCHIZOPHRENIA
     Route: 048
     Dates: start: 20070309, end: 20160105
  9. CLOZARIL [Concomitant]
     Active Substance: CLOZAPINE
     Indication: PRODUCT USED FOR UNKNOWN INDICATION
     Route: 065
     Dates: start: 19920311, end: 20070308

REACTIONS (5)
  - Leukopenia [Recovered/Resolved]
  - Platelet count decreased [Recovered/Resolved]
  - Contraindicated drug administered [Recovered/Resolved]
  - Platelet count increased [Recovered/Resolved]
  - Platelet count increased [Recovered/Resolved]

NARRATIVE: CASE EVENT DATE: 20130611
